FAERS Safety Report 9515449 (Version 1)
Quarter: 2013Q3

REPORT INFORMATION
  Report Type: Spontaneous
  Country: GB (occurrence: None)
  Receive Date: 20130909
  Receipt Date: 20130909
  Transmission Date: 20140515
  Serious: Yes (Life-Threatening, Hospitalization, Other)
  Sender: FDA-Public Use
  Company Number: AUR-APL-2013-07279

PATIENT
  Age: 80 Year
  Sex: Female

DRUGS (12)
  1. AMOXICILLIN (AMOXICILLIN) [Suspect]
     Indication: LOWER RESPIRATORY TRACT INFECTION
     Dosage: 1500 MG (500 MG, 3 IN 1 D), ORAL
     Dates: start: 20110825
  2. WARFARIN (WARFARIN) [Suspect]
     Indication: ATRIAL FIBRILLATION
     Dosage: UNKNOWN
  3. ADIZEM -XL (DILTIAZEM HYDROCHLORIDE) [Concomitant]
  4. AZITHROMYCIN (AZITHROMYCIN) [Concomitant]
  5. CARBOCISTEINE (CARBOCISTEINE) [Concomitant]
  6. DIGOXIN (DIGOXIN) [Concomitant]
  7. ISOSORBIDE MONONITRATE (ISOSORBIDE MONONITRATE) [Concomitant]
  8. LANSOPRAZOLE (LANSOPRAZOLE) [Concomitant]
  9. METFORMIN (METFORMIN) [Concomitant]
  10. SERETIDE (SERETIDE) [Concomitant]
  11. SPIRIVA (TIOTROPIUM BROMDE) [Concomitant]
  12. ZOMORPH (MORPHINE SULFATE) [Concomitant]

REACTIONS (1)
  - International normalised ratio increased [None]
